FAERS Safety Report 7817515-6 (Version None)
Quarter: 2011Q4

REPORT INFORMATION
  Report Type: 
  Country: None (occurrence: None)
  Receive Date: 20111017
  Receipt Date: 20111006
  Transmission Date: 20120403
  Serious: Yes (Hospitalization, Other)
  Sender: FDA-Public Use
  Company Number: JP-ROCHE-797952

PATIENT
  Sex: Female
  Weight: 39 kg

DRUGS (12)
  1. LASIX [Concomitant]
     Route: 040
     Dates: start: 20110611, end: 20110801
  2. ROCEPHIN [Suspect]
     Indication: ENDOCARDITIS
     Route: 042
     Dates: start: 20110518, end: 20110629
  3. LASIX [Concomitant]
     Route: 048
     Dates: start: 20061201, end: 20110610
  4. LASIX [Concomitant]
     Route: 048
  5. HEPARIN [Concomitant]
     Route: 041
     Dates: start: 20110611, end: 20110705
  6. VANCOMYCIN HCL [Concomitant]
     Route: 041
     Dates: start: 20110518, end: 20110608
  7. ASPIRIN [Suspect]
     Indication: TRICUSPID VALVE REPLACEMENT
     Route: 048
     Dates: start: 20110509, end: 20110704
  8. LASIX [Concomitant]
     Route: 040
  9. CARVEDILOL [Concomitant]
     Route: 048
  10. FRAGMIN [Concomitant]
     Dates: start: 20110706, end: 20110805
  11. AMIODARONE HCL [Concomitant]
     Route: 048
  12. LASIX [Concomitant]
     Route: 048

REACTIONS (2)
  - TOXIC ENCEPHALOPATHY [None]
  - AGRANULOCYTOSIS [None]
